FAERS Safety Report 4716345-1 (Version None)
Quarter: 2005Q3

REPORT INFORMATION
  Report Type: 
  Country: None (occurrence: None)
  Receive Date: 20050711
  Receipt Date: 20050505
  Transmission Date: 20060218
  Serious: Yes (Other)
  Sender: FDA-Public Use
  Company Number: ENTC2005-0126

PATIENT
  Sex: Female

DRUGS (1)
  1. STALEVO 100 [Suspect]
     Dosage: 50 MG
     Dates: start: 20050429

REACTIONS (1)
  - POOR QUALITY DRUG ADMINISTERED [None]
